FAERS Safety Report 14381347 (Version 3)
Quarter: 2018Q1

REPORT INFORMATION
  Report Type: Spontaneous
  Country: IT (occurrence: IT)
  Receive Date: 20180112
  Receipt Date: 20180215
  Transmission Date: 20180509
  Serious: Yes (Other)
  Sender: FDA-Public Use
  Company Number: IT-ABBVIE-18P-083-2221773-00

PATIENT
  Age: 16 Year
  Sex: Male

DRUGS (5)
  1. OLANZAPINE. [Suspect]
     Active Substance: OLANZAPINE
     Indication: AUTISM SPECTRUM DISORDER
     Route: 048
  2. CLOMIPRAMINE [Suspect]
     Active Substance: CLOMIPRAMINE
     Indication: AUTISM SPECTRUM DISORDER
     Route: 065
  3. QUETIAPINE. [Concomitant]
     Active Substance: QUETIAPINE
     Indication: AUTISM SPECTRUM DISORDER
  4. VALPROIC ACID. [Suspect]
     Active Substance: VALPROIC ACID
     Indication: AUTISM SPECTRUM DISORDER
     Dosage: EXTENDED RELEASE
     Route: 048
  5. LITHIUM. [Suspect]
     Active Substance: LITHIUM
     Indication: AUTISM SPECTRUM DISORDER
     Route: 065

REACTIONS (5)
  - Diabetes mellitus [Recovering/Resolving]
  - Polyuria [Recovering/Resolving]
  - Polydipsia [Recovering/Resolving]
  - Therapeutic response decreased [Recovering/Resolving]
  - Impaired quality of life [Unknown]
